FAERS Safety Report 4340415-3 (Version None)
Quarter: 2004Q2

REPORT INFORMATION
  Report Type: 
  Country: None (occurrence: None)
  Receive Date: 20040414
  Receipt Date: 20040405
  Transmission Date: 20050107
  Serious: Yes (Hospitalization)
  Sender: FDA-Public Use
  Company Number: 2004207881JP

PATIENT
  Age: 52 Year
  Sex: Female

DRUGS (1)
  1. AZULFIDINE [Suspect]
     Indication: RHEUMATOID ARTHRITIS
     Dosage: 1000MG/DAY, ORAL
     Route: 048
     Dates: start: 20040209, end: 20040313

REACTIONS (4)
  - HEPATIC FUNCTION ABNORMAL [None]
  - MONONUCLEOSIS SYNDROME [None]
  - NASOPHARYNGITIS [None]
  - RASH [None]
